FAERS Safety Report 15530457 (Version 1)
Quarter: 2018Q4

REPORT INFORMATION
  Report Type: Spontaneous
  Country: FR (occurrence: FR)
  Receive Date: 20181018
  Receipt Date: 20181018
  Transmission Date: 20190205
  Serious: Yes (Hospitalization)
  Sender: FDA-Public Use
  Company Number: FR-PFIZER INC-2018413828

PATIENT
  Age: 61 Year
  Sex: Female

DRUGS (12)
  1. AMETYCINE [Concomitant]
     Active Substance: MITOMYCIN
     Dosage: UNK
     Route: 042
     Dates: start: 20180104, end: 20180621
  2. DEPAKINE [VALPROIC ACID] [Concomitant]
     Route: 048
  3. SUSTIVA [Concomitant]
     Active Substance: EFAVIRENZ
     Dosage: UNK
     Route: 048
     Dates: end: 20180214
  4. TAZOCILLINE [Suspect]
     Active Substance: PIPERACILLIN SODIUM\TAZOBACTAM SODIUM
     Indication: PELVIC INFECTION
     Dosage: UNK
     Route: 042
     Dates: start: 20180117
  5. TRUVADA [Suspect]
     Active Substance: EMTRICITABINE\TENOFOVIR DISOPROXIL FUMARATE
     Indication: HIV INFECTION
     Dosage: UNK
     Route: 048
     Dates: end: 20180214
  6. VESICARE [Concomitant]
     Active Substance: SOLIFENACIN SUCCINATE
     Route: 048
  7. FLUOROURACIL. [Concomitant]
     Active Substance: FLUOROURACIL
     Dosage: UNK
     Route: 042
     Dates: start: 20180104, end: 20180621
  8. GENTAMICIN. [Suspect]
     Active Substance: GENTAMICIN
     Indication: PELVIC INFECTION
     Dosage: UNK
     Route: 042
     Dates: start: 20180117
  9. LAROXYL [Concomitant]
     Active Substance: AMITRIPTYLINE HYDROCHLORIDE
     Dosage: UNK
     Route: 048
  10. TIENAM [Concomitant]
     Active Substance: CILASTATIN SODIUM\IMIPENEM
     Dosage: UNK
     Route: 042
  11. LYRICA [Concomitant]
     Active Substance: PREGABALIN
     Dosage: UNK
     Route: 048
  12. KARDEGIC [Concomitant]
     Active Substance: ASPIRIN DL-LYSINE
     Dosage: UNK (POWDER FOR ORAL SOLUTION IN SACHET-DOSE)
     Route: 048

REACTIONS (2)
  - Renal tubular disorder [Recovering/Resolving]
  - Acute kidney injury [Recovering/Resolving]

NARRATIVE: CASE EVENT DATE: 20180120
